FAERS Safety Report 10461172 (Version 1)
Quarter: 2014Q3

REPORT INFORMATION
  Report Type: Spontaneous
  Country: US (occurrence: None)
  Receive Date: 20140917
  Receipt Date: 20140917
  Transmission Date: 20150326
  Serious: Yes (Other)
  Sender: FDA-Public Use
  Company Number: None

PATIENT
  Age: 67 Year
  Sex: Female
  Weight: 56.25 kg

DRUGS (6)
  1. ALBUMIN [Concomitant]
     Active Substance: ALBUMIN (HUMAN)
  2. VANCOMYCIN [Concomitant]
     Active Substance: VANCOMYCIN
  3. ELIQUIS [Suspect]
     Active Substance: APIXABAN
     Indication: ATRIAL FIBRILLATION
     Dosage: 1  BID  ORAL
     Route: 048
     Dates: start: 20140613, end: 20140712
  4. NS [Concomitant]
     Active Substance: SODIUM CHLORIDE
  5. SODIUM PHOSPHATE [Concomitant]
     Active Substance: SODIUM PHOSPHATE
  6. ASA [Concomitant]
     Active Substance: ASPIRIN

REACTIONS (5)
  - Condition aggravated [None]
  - Haemorrhoids [None]
  - Rectal ulcer [None]
  - Gastric fistula [None]
  - Rectal haemorrhage [None]

NARRATIVE: CASE EVENT DATE: 20140712
